FAERS Safety Report 5585161-3 (Version None)
Quarter: 2008Q1

REPORT INFORMATION
  Report Type: 
  Country: None (occurrence: None)
  Receive Date: 20080109
  Receipt Date: 20080107
  Transmission Date: 20080703
  Serious: Yes (Hospitalization)
  Sender: FDA-Public Use
  Company Number: AU-WYE-G00844908

PATIENT
  Sex: Female

DRUGS (6)
  1. EFFEXOR XR [Suspect]
     Indication: DEPRESSION
     Route: 048
     Dates: end: 20070125
  2. GLICLAZIDE [Concomitant]
  3. NEXIUM [Concomitant]
  4. ACTOS [Concomitant]
  5. RISPERIDONE [Suspect]
     Route: 048
     Dates: end: 20070123
  6. VALPROATE SODIUM [Concomitant]

REACTIONS (5)
  - EXTRAPYRAMIDAL DISORDER [None]
  - HYPERHIDROSIS [None]
  - MOBILITY DECREASED [None]
  - MUSCLE RIGIDITY [None]
  - PARKINSONISM [None]
